FAERS Safety Report 5835002-1 (Version None)
Quarter: 2008Q3

REPORT INFORMATION
  Report Type: 
  Country: None (occurrence: None)
  Receive Date: 20080801
  Receipt Date: 20080716
  Transmission Date: 20090109
  Serious: Yes (Other)
  Sender: FDA-Public Use
  Company Number: JP-1166860

PATIENT
  Age: 57 Year
  Sex: Male

DRUGS (1)
  1. VIGAMOX        (MOXIFLOXACIN HYDROCHLORIDE)          EYE DROPS, SOLUTI [Suspect]
     Indication: HORDEOLUM
     Dosage: 1 GTT
     Route: 047
     Dates: start: 20080716, end: 20080716

REACTIONS (8)
  - CONJUNCTIVAL OEDEMA [None]
  - ERYTHEMA [None]
  - ERYTHEMA OF EYELID [None]
  - EYE IRRITATION [None]
  - EYE PAIN [None]
  - EYELID OEDEMA [None]
  - GLARE [None]
  - LACRIMATION INCREASED [None]
